FAERS Safety Report 21517846 (Version 1)
Quarter: 2022Q4

REPORT INFORMATION
  Report Type: Report from Study
  Country: FR (occurrence: FR)
  Receive Date: 20221028
  Receipt Date: 20221028
  Transmission Date: 20230112
  Serious: Yes (Hospitalization)
  Sender: FDA-Public Use
  Company Number: FR-ABBVIE-4175803

PATIENT
  Age: 54 Year
  Sex: Female
  Weight: 98 kg

DRUGS (4)
  1. UPADACITINIB [Suspect]
     Active Substance: UPADACITINIB
     Indication: Rheumatoid arthritis
     Dosage: 15 MILLIGRAM
     Route: 048
     Dates: start: 20211220
  2. TRAMADOL [Concomitant]
     Active Substance: TRAMADOL
     Indication: Prophylaxis
     Dosage: AS NEEDED
     Route: 048
     Dates: start: 20220531
  3. TRAMADOL [Concomitant]
     Active Substance: TRAMADOL
     Indication: Prophylaxis
     Dosage: AS NEEDED
     Route: 048
     Dates: start: 2010, end: 20220530
  4. CORTISONE [Concomitant]
     Active Substance: CORTISONE
     Indication: Rheumatoid arthritis
     Dosage: 5 MILLIGRAM
     Route: 048
     Dates: start: 2010

REACTIONS (1)
  - Pain [Recovered/Resolved]

NARRATIVE: CASE EVENT DATE: 20220519
